FAERS Safety Report 24086169 (Version 1)
Quarter: 2024Q3

REPORT INFORMATION
  Report Type: Spontaneous
  Country: KR (occurrence: KR)
  Receive Date: 20240712
  Receipt Date: 20240712
  Transmission Date: 20241016
  Serious: Yes (Other)
  Sender: TEVA
  Company Number: KR-TEVA-VS-3216503

PATIENT
  Age: 8 Decade
  Sex: Male

DRUGS (2)
  1. DOXORUBICIN [Suspect]
     Active Substance: DOXORUBICIN
     Dosage: VIAL
     Route: 042
     Dates: start: 20230906, end: 20230906
  2. DACARBAZINE [Suspect]
     Active Substance: DACARBAZINE
     Dosage: VIAL
     Route: 042
     Dates: start: 20230906, end: 20230906

REACTIONS (1)
  - Leukopenia [Recovered/Resolved]

NARRATIVE: CASE EVENT DATE: 20230913
